FAERS Safety Report 9572433 (Version 1)
Quarter: 2013Q4

REPORT INFORMATION
  Report Type: Spontaneous
  Country: US (occurrence: US)
  Receive Date: 20131001
  Receipt Date: 20131001
  Transmission Date: 20140711
  Serious: No
  Sender: FDA-Public Use
  Company Number: US-TEVA-435374USA

PATIENT
  Sex: Male
  Weight: 93.07 kg

DRUGS (6)
  1. NUVIGIL [Suspect]
     Indication: SLEEP APNOEA SYNDROME
  2. CYMBALTA [Concomitant]
     Indication: DEPRESSION
  3. MIRTAZAPINE [Concomitant]
     Indication: INSOMNIA
  4. CLONAZEPAM [Concomitant]
     Indication: TREMOR
  5. CARBIDOPA W/LEVODOPA [Concomitant]
     Indication: PARKINSON^S DISEASE
  6. METOPROLOL [Concomitant]
     Indication: HYPERTENSION

REACTIONS (1)
  - Fatigue [Unknown]
